FAERS Safety Report 23520028 (Version 1)
Quarter: 2024Q1

REPORT INFORMATION
  Report Type: Spontaneous
  Country: CZ (occurrence: CZ)
  Receive Date: 20240214
  Receipt Date: 20240214
  Transmission Date: 20240410
  Serious: Yes (Other)
  Sender: FDA-Public Use
  Company Number: CZ-JNJFOC-20240177546

PATIENT
  Age: 34 Year
  Sex: Male

DRUGS (2)
  1. REMICADE [Suspect]
     Active Substance: INFLIXIMAB
     Indication: Psoriatic arthropathy
     Dosage: INFLIXIMAB 5 MG/KG, WITH THE SAME DOSES AT 2 AND 6 WEEKS AFTER THE FIRST INFUSION AND THEN EVERY 8 W
     Route: 041
     Dates: start: 20160510
  2. REMICADE [Suspect]
     Active Substance: INFLIXIMAB
     Indication: Psoriasis

REACTIONS (1)
  - Ophthalmic herpes zoster [Recovered/Resolved]

NARRATIVE: CASE EVENT DATE: 20180801
